FAERS Safety Report 4488945-8 (Version None)
Quarter: 2004Q4

REPORT INFORMATION
  Report Type: 
  Country: None (occurrence: None)
  Receive Date: 20041029
  Receipt Date: 20041025
  Transmission Date: 20050328
  Serious: Yes (Hospitalization)
  Sender: FDA-Public Use
  Company Number: US-BRISTOL-MYERS SQUIBB COMPANY-12743134

PATIENT
  Age: 62 Year
  Sex: Female

DRUGS (1)
  1. TEQUIN [Suspect]
     Route: 048

REACTIONS (1)
  - HYPERGLYCAEMIA [None]
